FAERS Safety Report 18783297 (Version 18)
Quarter: 2024Q3

REPORT INFORMATION
  Report Type: Spontaneous
  Country: GB (occurrence: GB)
  Receive Date: 20210125
  Receipt Date: 20240920
  Transmission Date: 20241017
  Serious: Yes (Other)
  Sender: TEVA
  Company Number: GB-ROCHE-2729221

PATIENT
  Age: 72 Year
  Sex: Female
  Weight: 60 kg

DRUGS (58)
  1. PREDNISOLONE [Suspect]
     Active Substance: PREDNISOLONE
     Indication: Diffuse large B-cell lymphoma
     Dosage: UNK
     Route: 065
     Dates: start: 20201118, end: 20201122
  2. PREDNISOLONE [Suspect]
     Active Substance: PREDNISOLONE
     Indication: Diffuse large B-cell lymphoma
     Dosage: 100 MILLIGRAM (DATE OF MOST RECENT DOSE PRIOR TO FIRST EPISODE OF NEUTROPENIA 24/NOV/2020.DATE OF MO
     Route: 065
     Dates: start: 20201124
  3. GLOFITAMAB [Suspect]
     Active Substance: GLOFITAMAB
     Indication: Diffuse large B-cell lymphoma
     Dosage: UNK
     Route: 065
  4. GLOFITAMAB [Suspect]
     Active Substance: GLOFITAMAB
     Indication: Diffuse large B-cell lymphoma
     Dosage: UNK
     Route: 065
  5. RITUXIMAB [Suspect]
     Active Substance: RITUXIMAB
     Indication: Diffuse large B-cell lymphoma
     Dosage: 100 MG
     Route: 065
     Dates: start: 20210216
  6. RITUXIMAB [Suspect]
     Active Substance: RITUXIMAB
     Indication: Diffuse large B-cell lymphoma
     Dosage: 100 MG
     Route: 065
     Dates: start: 20210216, end: 20210216
  7. RITUXIMAB [Suspect]
     Active Substance: RITUXIMAB
     Indication: Diffuse large B-cell lymphoma
     Dosage: 100 MG
     Route: 065
     Dates: start: 20210105, end: 20210216
  8. RITUXIMAB [Suspect]
     Active Substance: RITUXIMAB
     Indication: Diffuse large B-cell lymphoma
     Dosage: 100MG
     Route: 065
     Dates: start: 20201221, end: 20201221
  9. RITUXIMAB [Suspect]
     Active Substance: RITUXIMAB
     Indication: Diffuse large B-cell lymphoma
     Dosage: 100 MG
     Route: 065
     Dates: start: 20201124, end: 20210216
  10. RITUXIMAB [Suspect]
     Active Substance: RITUXIMAB
     Indication: Diffuse large B-cell lymphoma
     Dosage: 9 MG/M2, TOTAL VOLUME PRIOR AE 560 MLDATE OF MOST RECENT DOSE PRIOR TO FIRST EPISODE OF NEUTROPENIA
     Route: 065
     Dates: start: 20201124
  11. SENNA [Concomitant]
     Active Substance: SENNA LEAF\SENNOSIDES\SENNOSIDES A AND B
     Indication: Constipation
     Dates: start: 20201124
  12. CHLORPHENIRAMINE MALEATE [Concomitant]
     Active Substance: CHLORPHENIRAMINE MALEATE
     Indication: Rash maculo-papular
     Dosage: 10 MG
     Route: 065
     Dates: start: 20210216, end: 20210216
  13. CHLORPHENIRAMINE MALEATE [Concomitant]
     Active Substance: CHLORPHENIRAMINE MALEATE
     Indication: Rash maculo-papular
     Dosage: 10 MG
     Dates: start: 20210126, end: 20210126
  14. CHLORPHENIRAMINE MALEATE [Concomitant]
     Active Substance: CHLORPHENIRAMINE MALEATE
     Indication: Rash maculo-papular
     Dosage: 10 MG
     Route: 065
     Dates: start: 20201217
  15. CHLORPHENIRAMINE MALEATE [Concomitant]
     Active Substance: CHLORPHENIRAMINE MALEATE
     Indication: Rash maculo-papular
     Dosage: TIME INTERVAL: 0.33333333 WEEKS: DOSE LAST STUDY DRUG ADMIN PRIOR AE 1260 MGSTART AD END DATE OF ...
     Dates: start: 20201124, end: 20201124
  16. CHLORPHENIRAMINE MALEATE [Concomitant]
     Active Substance: CHLORPHENIRAMINE MALEATE
     Indication: Rash maculo-papular
     Dosage: 10 MG
     Route: 065
     Dates: start: 20210119, end: 20210119
  17. CHLORPHENIRAMINE MALEATE [Concomitant]
     Active Substance: CHLORPHENIRAMINE MALEATE
     Indication: Rash maculo-papular
     Dosage: 10 MG
     Dates: start: 20210323, end: 20210323
  18. CHLORPHENIRAMINE MALEATE [Concomitant]
     Active Substance: CHLORPHENIRAMINE MALEATE
     Indication: Rash maculo-papular
     Dosage: 10 MG
     Dates: start: 20210209, end: 20210209
  19. CHLORPHENIRAMINE MALEATE [Concomitant]
     Active Substance: CHLORPHENIRAMINE MALEATE
     Indication: Rash maculo-papular
     Dosage: 10 MG
     Dates: start: 20210309, end: 20210309
  20. CHLORPHENIRAMINE MALEATE [Concomitant]
     Active Substance: CHLORPHENIRAMINE MALEATE
     Indication: Rash maculo-papular
     Dosage: 10 MG
     Route: 065
     Dates: start: 20201215, end: 20201215
  21. CHLORPHENIRAMINE MALEATE [Concomitant]
     Active Substance: CHLORPHENIRAMINE MALEATE
     Indication: Rash maculo-papular
     Dosage: 10 MG
     Route: 065
     Dates: start: 20210302, end: 20210302
  22. ACETAMINOPHEN [Concomitant]
     Active Substance: ACETAMINOPHEN
     Indication: Prophylaxis
     Dosage: 1000 MG
     Route: 065
     Dates: start: 20201124, end: 20201124
  23. ACETAMINOPHEN [Concomitant]
     Active Substance: ACETAMINOPHEN
     Indication: Prophylaxis
     Dosage: 1000 MG
     Route: 065
     Dates: start: 20201215, end: 20201215
  24. ACETAMINOPHEN [Concomitant]
     Active Substance: ACETAMINOPHEN
     Indication: Prophylaxis
     Dosage: 1000 MG
     Route: 065
     Dates: start: 20210119, end: 20210119
  25. ACETAMINOPHEN [Concomitant]
     Active Substance: ACETAMINOPHEN
     Indication: Prophylaxis
     Dosage: 100 MG
     Route: 065
     Dates: start: 20210126, end: 20210126
  26. ACETAMINOPHEN [Concomitant]
     Active Substance: ACETAMINOPHEN
     Indication: Prophylaxis
     Dosage: 1000 MG
     Route: 065
     Dates: start: 20210209, end: 20210209
  27. ACETAMINOPHEN [Concomitant]
     Active Substance: ACETAMINOPHEN
     Indication: Prophylaxis
     Dosage: 1000 MG
     Route: 065
     Dates: start: 20210216, end: 20210216
  28. ACETAMINOPHEN [Concomitant]
     Active Substance: ACETAMINOPHEN
     Indication: Prophylaxis
     Dosage: 1000 MG
     Route: 065
     Dates: start: 20210302, end: 20230302
  29. ACETAMINOPHEN [Concomitant]
     Active Substance: ACETAMINOPHEN
     Indication: Prophylaxis
     Route: 065
     Dates: start: 20210309, end: 20210309
  30. ACETAMINOPHEN [Concomitant]
     Active Substance: ACETAMINOPHEN
     Indication: Prophylaxis
     Dosage: 1000 MG
     Route: 065
     Dates: start: 20210323, end: 20230323
  31. ACETAMINOPHEN [Concomitant]
     Active Substance: ACETAMINOPHEN
     Indication: Prophylaxis
     Route: 065
     Dates: start: 20201123
  32. CYCLOPHOSPHAMIDE [Suspect]
     Active Substance: CYCLOPHOSPHAMIDE
     Indication: Diffuse large B-cell lymphoma
     Dosage: UNK
     Route: 065
     Dates: start: 20201124
  33. CYCLOPHOSPHAMIDE [Suspect]
     Active Substance: CYCLOPHOSPHAMIDE
     Indication: Diffuse large B-cell lymphoma
     Dosage: UNK
     Route: 065
  34. VALGANCICLOVIR [Suspect]
     Active Substance: VALGANCICLOVIR
     Indication: Cytomegalovirus viraemia
     Dosage: UNK
     Route: 065
     Dates: end: 20210513
  35. VINCRISTINE [Suspect]
     Active Substance: VINCRISTINE
     Indication: Diffuse large B-cell lymphoma
     Dosage: 9 MG/M2, THREE TIMES IN WEEK, TOTAL VOLUME: 50 ML DATE OF MOST RECENT DOSE PRIOR TO FIRST EPISODE OF
     Route: 065
     Dates: start: 20201121
  36. VINCRISTINE [Suspect]
     Active Substance: VINCRISTINE
     Indication: Diffuse large B-cell lymphoma
     Dosage: 9 MG/M2, THREE TIMES IN WEEK, 2 MILLIGRAM/SQ. METER, TOTAL VOLUME: 50 ML DATE OF MOST RECENT DOSE PR
     Route: 065
     Dates: start: 20201124
  37. VINCRISTINE [Suspect]
     Active Substance: VINCRISTINE
     Indication: Diffuse large B-cell lymphoma
     Dosage: 9 MG/M2, THREE TIMES IN WEEK, TOTAL VOLUME: 50 ML DATE OF MOST RECENT DOSE PRIOR TO FIRST EPISODE OF
     Route: 065
  38. DOXORUBICIN [Suspect]
     Active Substance: DOXORUBICIN
     Indication: Diffuse large B-cell lymphoma
     Dosage: 150 MG/M2, ONE A WEEK, 50 MG/M2, TIW (DATE OF MOST RECENT DOSE PRIOR TO FIRST EPISODE OF NEUTROPENIA
     Route: 065
     Dates: start: 20201124
  39. DOXORUBICIN [Suspect]
     Active Substance: DOXORUBICIN
     Indication: Diffuse large B-cell lymphoma
     Dosage: UNK
     Route: 065
  40. DEXAMETHASONE [Concomitant]
     Active Substance: DEXAMETHASONE
     Indication: Product used for unknown indication
     Dosage: DURATION: 1 DAY;
     Dates: start: 20210323, end: 20210323
  41. DEXAMETHASONE [Concomitant]
     Active Substance: DEXAMETHASONE
     Indication: Product used for unknown indication
     Dosage: 20 MG
     Dates: start: 20210302, end: 20210302
  42. DEXAMETHASONE [Concomitant]
     Active Substance: DEXAMETHASONE
     Indication: Product used for unknown indication
     Route: 065
     Dates: start: 20210119, end: 20210119
  43. DEXAMETHASONE [Concomitant]
     Active Substance: DEXAMETHASONE
     Indication: Product used for unknown indication
     Route: 065
     Dates: start: 20210219, end: 20210219
  44. DOXORUBICIN HYDROCHLORIDE [Suspect]
     Active Substance: DOXORUBICIN HYDROCHLORIDE
     Indication: Diffuse large B-cell lymphoma
     Route: 065
     Dates: start: 20201124
  45. BENDAMUSTINE [Suspect]
     Active Substance: BENDAMUSTINE
     Indication: Product used for unknown indication
     Route: 065
  46. FILGRASTIM [Concomitant]
     Active Substance: FILGRASTIM
     Indication: Prophylaxis
     Dosage: UNKUNK
     Dates: start: 20201129, end: 20201206
  47. FILGRASTIM [Concomitant]
     Active Substance: FILGRASTIM
     Indication: Prophylaxis
     Dosage: UNK
     Route: 065
     Dates: start: 20201220
  48. OMEPRAZOLE [Concomitant]
     Active Substance: OMEPRAZOLE
     Indication: Gastrointestinal disorder prophylaxis
     Dosage: UNK
     Route: 065
  49. OMEPRAZOLE [Concomitant]
     Active Substance: OMEPRAZOLE
     Indication: Gastrointestinal disorder prophylaxis
     Dosage: UNK
     Route: 065
     Dates: start: 20201118
  50. SARS-CoV-2 vaccine [Concomitant]
     Indication: Product used for unknown indication
     Dosage: UNK
  51. PREDNISOLONE [Concomitant]
     Active Substance: PREDNISOLONE
     Indication: Diffuse large B-cell lymphoma
     Dosage: UNK
     Dates: start: 20201118, end: 20201122
  52. PREDNISOLONE [Concomitant]
     Active Substance: PREDNISOLONE
     Indication: Diffuse large B-cell lymphoma
     Dosage: UNK
     Dates: start: 20201124
  53. PREDNISOLONE [Concomitant]
     Active Substance: PREDNISOLONE
     Indication: Diffuse large B-cell lymphoma
     Dosage: UNK
  54. ALLOPURINOL [Concomitant]
     Active Substance: ALLOPURINOL
     Indication: Prophylaxis
     Dosage: UNK
     Route: 065
     Dates: start: 20201118
  55. SENOKOT [Concomitant]
     Active Substance: SENNOSIDES
     Indication: Constipation
     Dosage: UNK, SENNA PODS POWDERED
     Dates: start: 20201124
  56. SENOKOT [Concomitant]
     Active Substance: SENNOSIDES
     Indication: Constipation
     Dosage: UNK, SENNA PODS POWDERED
  57. CODEINE [Concomitant]
     Active Substance: CODEINE
     Indication: Pain
     Dosage: TIME INTERVAL: AS NECESSARY
     Route: 065
     Dates: start: 20201224, end: 20201224
  58. CODEINE [Concomitant]
     Active Substance: CODEINE
     Indication: Pain
     Dosage: TIME INTERVAL: AS NECESSARY
     Route: 065
     Dates: start: 20201123

REACTIONS (3)
  - Neutropenia [Recovered/Resolved]
  - Product use in unapproved indication [Unknown]
  - Off label use [Unknown]

NARRATIVE: CASE EVENT DATE: 20201124
